FAERS Safety Report 22319575 (Version 1)
Quarter: 2023Q2

REPORT INFORMATION
  Report Type: Spontaneous
  Country: US (occurrence: US)
  Receive Date: 20230515
  Receipt Date: 20230515
  Transmission Date: 20230721
  Serious: Yes (Other)
  Sender: FDA-Public Use
  Company Number: US-SA-SAC20230512000761

PATIENT
  Sex: Male

DRUGS (1)
  1. DUPIXENT [Suspect]
     Active Substance: DUPILUMAB
     Dosage: 300 MG ;FREQUENCY: OTHER
     Route: 058

REACTIONS (5)
  - Pneumonia [Unknown]
  - Asthma [Unknown]
  - Respiration abnormal [Unknown]
  - Respiratory tract congestion [Unknown]
  - Oxygen saturation decreased [Unknown]
